FAERS Safety Report 22954763 (Version 3)
Quarter: 2023Q4

REPORT INFORMATION
  Report Type: Spontaneous
  Country: US (occurrence: US)
  Receive Date: 20230918
  Receipt Date: 20231106
  Transmission Date: 20240109
  Serious: No
  Sender: FDA-Public Use
  Company Number: US-BAYER-2023A120132

PATIENT
  Age: 70 Year
  Sex: Female

DRUGS (2)
  1. BETASERON [Suspect]
     Active Substance: INTERFERON BETA-1B
  2. DEVICE [Suspect]
     Active Substance: DEVICE

REACTIONS (3)
  - Product dose omission issue [None]
  - Device power source issue [None]
  - Expired device used [None]

NARRATIVE: CASE EVENT DATE: 20230822
